FAERS Safety Report 23116707 (Version 1)
Quarter: 2023Q4

REPORT INFORMATION
  Report Type: Spontaneous
  Country: US (occurrence: US)
  Receive Date: 20231027
  Receipt Date: 20231027
  Transmission Date: 20240110
  Serious: No
  Sender: FDA-Public Use
  Company Number: US-PERRIGO-23US009546

PATIENT
  Age: 39 Year
  Sex: Male
  Weight: 77.098 kg

DRUGS (2)
  1. FAMOTIDINE [Suspect]
     Active Substance: FAMOTIDINE
     Indication: Gastrooesophageal reflux disease
     Dosage: 20 MG, QD
     Route: 048
     Dates: start: 20230820, end: 20230824
  2. FAMOTIDINE [Suspect]
     Active Substance: FAMOTIDINE
     Dosage: 60 TO 100 MG, SINGLE
     Route: 048
     Dates: start: 20230825, end: 20230825

REACTIONS (2)
  - Drug ineffective [Unknown]
  - Overdose [Recovered/Resolved]

NARRATIVE: CASE EVENT DATE: 20230820
